FAERS Safety Report 11363012 (Version 1)
Quarter: 2015Q3

REPORT INFORMATION
  Report Type: Spontaneous
  Country: US (occurrence: US)
  Receive Date: 20150810
  Receipt Date: 20150810
  Transmission Date: 20151125
  Serious: Yes (Hospitalization, Other)
  Sender: FDA-Public Use
  Company Number: US-ABBVIE-15P-163-1441441-00

PATIENT
  Age: 69 Year
  Sex: Male

DRUGS (1)
  1. ANDROGEL [Suspect]
     Active Substance: TESTOSTERONE
     Indication: BLOOD TESTOSTERONE DECREASED
     Dosage: SPRAY
     Route: 065
     Dates: start: 20111106, end: 201201

REACTIONS (7)
  - Cardiac pacemaker insertion [Unknown]
  - Myocardial infarction [Unknown]
  - Pain [Unknown]
  - Emotional distress [Unknown]
  - Economic problem [Unknown]
  - Anxiety [Unknown]
  - Impaired work ability [Unknown]

NARRATIVE: CASE EVENT DATE: 20120123
